FAERS Safety Report 24036553 (Version 1)
Quarter: 2024Q2

REPORT INFORMATION
  Report Type: Spontaneous
  Country: US (occurrence: None)
  Receive Date: 20240630
  Receipt Date: 20240630
  Transmission Date: 20240715
  Serious: No
  Sender: FDA-Public Use
  Company Number: None

PATIENT
  Age: 43 Year
  Sex: Female
  Weight: 89.1 kg

DRUGS (1)
  1. ZEPBOUND [Suspect]
     Active Substance: TIRZEPATIDE
     Indication: Obesity
     Dates: start: 20240628

REACTIONS (4)
  - Myalgia [None]
  - Fatigue [None]
  - Lethargy [None]
  - Loss of personal independence in daily activities [None]

NARRATIVE: CASE EVENT DATE: 20240629
